FAERS Safety Report 8596769-5 (Version None)
Quarter: 2012Q3

REPORT INFORMATION
  Report Type: 
  Country: None (occurrence: None)
  Receive Date: 20120815
  Receipt Date: 20120810
  Transmission Date: 20120928
  Serious: Yes (Other)
  Sender: FDA-Public Use
  Company Number: TR-PFIZER INC-2012101750

PATIENT
  Age: 29 Year
  Sex: Female

DRUGS (1)
  1. VARENICLINE [Suspect]
     Dosage: HALF A TABLET, 2X/DAY
     Dates: start: 20120413, end: 20120416

REACTIONS (5)
  - AFFECTIVE DISORDER [None]
  - RASH [None]
  - SUICIDAL IDEATION [None]
  - LIBIDO DECREASED [None]
  - DEPRESSION [None]
